FAERS Safety Report 8908073 (Version 1)
Quarter: 2012Q4

REPORT INFORMATION
  Report Type: 
  Country: US (occurrence: US)
  Receive Date: 20121113
  Receipt Date: 20121113
  Transmission Date: 20130627
  Serious: No
  Sender: FDA-Public Use
  Company Number: US-PFIZER INC-2012281376

PATIENT
  Age: 60 Year
  Sex: Female
  Weight: 74.38 kg

DRUGS (5)
  1. LYRICA [Suspect]
     Indication: PAIN IN HIP
     Dosage: 75 mg, 2x/day
     Route: 048
     Dates: end: 201210
  2. LYRICA [Suspect]
     Indication: PAIN IN LEG
  3. VICODIN [Concomitant]
     Dosage: UNK
  4. FLEXERIL [Concomitant]
     Dosage: UNK
  5. SYNTHROID [Concomitant]
     Indication: HYPOTHYROIDISM
     Dosage: UNK

REACTIONS (2)
  - Arthralgia [Not Recovered/Not Resolved]
  - Pain in extremity [Not Recovered/Not Resolved]
